FAERS Safety Report 4620739-2 (Version None)
Quarter: 2005Q1

REPORT INFORMATION
  Report Type: 
  Country: None (occurrence: None)
  Receive Date: 20050325
  Receipt Date: 20050315
  Transmission Date: 20050727
  Serious: Yes (Hospitalization)
  Sender: FDA-Public Use
  Company Number: HQWYE457312NOV04

PATIENT
  Age: 56 Year
  Sex: Female
  Weight: 79 kg

DRUGS (27)
  1. RAPAMUNE [Suspect]
     Indication: PROPHYLAXIS AGAINST TRANSPLANT REJECTION
     Dosage: SEE IMAGE
     Route: 048
     Dates: start: 20040930, end: 20041101
  2. RAPAMUNE [Suspect]
     Indication: PROPHYLAXIS AGAINST TRANSPLANT REJECTION
     Dosage: SEE IMAGE
     Route: 048
     Dates: start: 20041101, end: 20041221
  3. RAPAMUNE [Suspect]
     Indication: PROPHYLAXIS AGAINST TRANSPLANT REJECTION
     Dosage: SEE IMAGE
     Route: 048
     Dates: start: 20041221
  4. ANTITHYMOCYTE IMMUNOGLOBULIN (ANTITHYMOCYTE  IMMUNOGLBULIN,) [Suspect]
     Indication: KIDNEY TRANSPLANT REJECTION
     Dates: start: 20040101
  5. PREDNISONE [Suspect]
     Indication: PROPHYLAXIS AGAINST TRANSPLANT REJECTION
     Dosage: SEE IMAGE
     Route: 048
     Dates: start: 20041013, end: 20041101
  6. PREDNISONE [Suspect]
     Indication: PROPHYLAXIS AGAINST TRANSPLANT REJECTION
     Dosage: SEE IMAGE
     Route: 048
     Dates: start: 20041101, end: 20041222
  7. PREDNISONE [Suspect]
     Indication: PROPHYLAXIS AGAINST TRANSPLANT REJECTION
     Dosage: SEE IMAGE
     Route: 048
     Dates: start: 20041222
  8. TACROLIUMS (TACROLIMUS) [Suspect]
     Indication: PROPHYLAXIS AGAINST TRANSPLANT REJECTION
     Dosage: SEE IMAGE
     Route: 048
     Dates: start: 20040930, end: 20041101
  9. TACROLIUMS (TACROLIMUS) [Suspect]
     Indication: PROPHYLAXIS AGAINST TRANSPLANT REJECTION
     Dosage: SEE IMAGE
     Route: 048
     Dates: start: 20041101, end: 20050121
  10. ZENAPAX [Suspect]
     Dosage: 100 MG X 2
     Dates: start: 20040101, end: 20041001
  11. DIFLUCAN (FLUCANAZOLE) [Concomitant]
  12. SEPTRA [Concomitant]
  13. COLACE (DOCUSATE SODIUM) [Concomitant]
  14. COLACE (DOCUSATE SODIUM) [Concomitant]
  15. NIFEREX (POLYSACCHARIDE-IRON COMPLEX) [Concomitant]
  16. ASPIRIN [Concomitant]
  17. VALCYTE [Concomitant]
  18. ZOCOR [Concomitant]
  19. NEXIUM [Concomitant]
  20. CELEXA [Concomitant]
  21. SYNTHROID [Concomitant]
  22. DITROPAN [Concomitant]
  23. FOLIC ACID (FOLIC ACID0 [Concomitant]
  24. LASIX [Concomitant]
  25. NEURONTIN [Concomitant]
  26. . [Concomitant]
  27. ,./ [Concomitant]

REACTIONS (9)
  - ANAEMIA [None]
  - BLOOD CREATININE INCREASED [None]
  - BLOOD GLUCOSE INCREASED [None]
  - BODY TEMPERATURE INCREASED [None]
  - HAEMATURIA [None]
  - PANCYTOPENIA [None]
  - PROTEINURIA [None]
  - TREMOR [None]
  - WHITE BLOOD CELLS URINE POSITIVE [None]
